FAERS Safety Report 12136560 (Version 1)
Quarter: 2016Q1

REPORT INFORMATION
  Report Type: Spontaneous
  Country: US (occurrence: None)
  Receive Date: 20160301
  Receipt Date: 20160301
  Transmission Date: 20160526
  Serious: Yes (Hospitalization)
  Sender: FDA-Public Use
  Company Number: None

PATIENT
  Age: 2 Year
  Sex: Male
  Weight: 12.9 kg

DRUGS (5)
  1. CYTARABINE. [Concomitant]
     Active Substance: CYTARABINE
     Dates: end: 20160206
  2. DEXAMETHASONE. [Concomitant]
     Active Substance: DEXAMETHASONE
     Dates: end: 20160221
  3. VINCRISTINE SULFATE. [Concomitant]
     Active Substance: VINCRISTINE SULFATE
     Dates: end: 20160222
  4. METHOTREXATE [Concomitant]
     Active Substance: METHOTREXATE
     Dates: end: 20160216
  5. ONCASPAR [Suspect]
     Active Substance: PEGASPARGASE
     Dates: end: 20160210

REACTIONS (6)
  - Pallor [None]
  - Pulse absent [None]
  - Cyanosis [None]
  - Bruxism [None]
  - Respiratory arrest [None]
  - Contusion [None]

NARRATIVE: CASE EVENT DATE: 20160229
